FAERS Safety Report 24706804 (Version 1)
Quarter: 2024Q4

REPORT INFORMATION
  Report Type: Spontaneous
  Country: US (occurrence: None)
  Receive Date: 20241206
  Receipt Date: 20241206
  Transmission Date: 20250114
  Serious: Yes (Hospitalization)
  Sender: Public
  Company Number: None

PATIENT
  Sex: Female

DRUGS (1)
  1. TACROLIMUS [Suspect]
     Active Substance: TACROLIMUS
     Indication: Liver transplant
     Dosage: FREQ: TAKE 2 CAPSULES (2 MG TOTAL) BY MOUTH EVERY 12 (TWELVE) HOURS
     Route: 048
     Dates: start: 20180824

REACTIONS (1)
  - Lethargy [None]
